FAERS Safety Report 5103013-X (Version None)
Quarter: 2006Q3

REPORT INFORMATION
  Report Type: 
  Country: None (occurrence: None)
  Receive Date: 20060908
  Receipt Date: 20060821
  Transmission Date: 20061208
  Serious: Yes (Other)
  Sender: FDA-Public Use
  Company Number: 2006-03-1424

PATIENT
  Age: 29 Year
  Sex: Male
  Weight: 63 kg

DRUGS (4)
  1. NASONEX [Suspect]
     Indication: DRUG USE FOR UNKNOWN INDICATION
     Dosage: NAS
     Route: 045
     Dates: start: 20060301
  2. BETA BLOCKING AGENTS [Concomitant]
  3. FLUTICASONE PROPIONATE [Concomitant]
  4. BISOPROLOL FUMARATE [Concomitant]

REACTIONS (1)
  - LOSS OF CONSCIOUSNESS [None]
